FAERS Safety Report 18977955 (Version 4)
Quarter: 2024Q3

REPORT INFORMATION
  Report Type: Spontaneous
  Country: US (occurrence: US)
  Receive Date: 20210307
  Receipt Date: 20240910
  Transmission Date: 20241016
  Serious: Yes (Death, Hospitalization, Other)
  Sender: TEVA
  Company Number: US-TEVA-2021-US-1887159

PATIENT
  Age: 76 Year
  Sex: Male
  Weight: 90.71 kg

DRUGS (24)
  1. HYDROCHLOROTHIAZIDE\VALSARTAN [Suspect]
     Active Substance: HYDROCHLOROTHIAZIDE\VALSARTAN
     Indication: Hypertension
     Dosage: DOSAGE TEXT: FORM STRENGTH: 160-12 MG
     Route: 065
     Dates: start: 20131002, end: 20131009
  2. HYDROCHLOROTHIAZIDE\VALSARTAN [Suspect]
     Active Substance: HYDROCHLOROTHIAZIDE\VALSARTAN
     Indication: Hypertension
     Dosage: DOSAGE TEXT: STRENGTH: 160-12 MG
     Route: 065
     Dates: start: 20170912, end: 20171211
  3. HYDROCHLOROTHIAZIDE\VALSARTAN [Suspect]
     Active Substance: HYDROCHLOROTHIAZIDE\VALSARTAN
     Indication: Hypertension
     Dosage: DOSAGE TEXT: STRENGTH: 160-12 MG?VALSARTAN/HYDROCHLOROTHIAZIDE MACLEODS PHARMACEUTICAL
     Route: 065
     Dates: start: 20181019, end: 20190423
  4. DIOVAN [Suspect]
     Active Substance: VALSARTAN
     Indication: Hypertension
     Dosage: DOSAGE TEXT: STRENGTH: 160MG,  NOVARTIS
     Route: 065
     Dates: start: 20030120, end: 20031215
  5. DIOVAN [Suspect]
     Active Substance: VALSARTAN
     Indication: Hypertension
     Dosage: DOSAGE TEXT: STRENGTH: 160MG, NOVARTIS
     Route: 065
     Dates: start: 20050829, end: 20070103
  6. SYNTHROID [Concomitant]
     Active Substance: LEVOTHYROXINE SODIUM
     Indication: Hypothyroidism
     Dosage: TAK E 175 MCG BY MOUTH DAILY
     Route: 048
     Dates: start: 200901, end: 201905
  7. GLUCOPHAGE [Concomitant]
     Active Substance: METFORMIN HYDROCHLORIDE
     Indication: Diabetes mellitus
     Dosage: 2 (TWO) TIMES A DAY WITH MEALS
     Route: 048
  8. LOPRESSOR [Concomitant]
     Active Substance: METOPROLOL TARTRATE
     Indication: Hypertension
     Route: 048
     Dates: start: 200901, end: 201905
  9. ZYLOPRIM [Concomitant]
     Active Substance: ALLOPURINOL
     Indication: Gout
     Route: 048
  10. DIOVAN HCT [Suspect]
     Active Substance: HYDROCHLOROTHIAZIDE\VALSARTAN
     Indication: Hypertension
     Dosage: DOSAGE TEXT: STRENGTH: 160-12.5 MG, NOVARTIS
     Route: 048
     Dates: start: 20070328, end: 20100717
  11. HYDROCHLOROTHIAZIDE\VALSARTAN [Suspect]
     Active Substance: HYDROCHLOROTHIAZIDE\VALSARTAN
     Indication: Hypertension
     Dosage: DOSAGE TEXT: STRENGTH: 160-12 MG, ACETERIS
     Route: 065
     Dates: start: 20170315, end: 20170911
  12. HYDROCHLOROTHIAZIDE\VALSARTAN [Suspect]
     Active Substance: HYDROCHLOROTHIAZIDE\VALSARTAN
     Indication: Hypertension
     Dosage: DOSAGE TEXT: STRENGTH: 160-12 MG?VALSARTAN/HYDROCHLOROTHIAZIDE ALEMBIC PHARMACEUTICALS
     Route: 065
     Dates: start: 20171216, end: 20181004
  13. HEPARIN [Concomitant]
     Active Substance: HEPARIN SODIUM
     Indication: Product used for unknown indication
     Dosage: HEPARIN (PORCINE) INJECTION 5,000 UNITS Q12 H SCH
     Route: 058
  14. TYLENOL [Concomitant]
     Active Substance: ACETAMINOPHEN
     Indication: Product used for unknown indication
     Dosage: Q6H PRN
  15. TYLENOL [Concomitant]
     Active Substance: ACETAMINOPHEN
     Indication: Product used for unknown indication
     Route: 050
     Dates: start: 20190414
  16. ASPIRIN [Concomitant]
     Active Substance: ASPIRIN
     Indication: Product used for unknown indication
     Route: 048
  17. JANUVIA [Concomitant]
     Active Substance: SITAGLIPTIN PHOSPHATE
     Indication: Diabetes mellitus
     Route: 048
     Dates: start: 200901, end: 201905
  18. PROAMATINE [Concomitant]
     Active Substance: MIDODRINE HYDROCHLORIDE
     Indication: Hypotension
     Dosage: TIME INTERVAL: 0.33333333 DAYS: WITH MEALS
     Route: 048
     Dates: start: 20190509
  19. PROAMATINE [Concomitant]
     Active Substance: MIDODRINE HYDROCHLORIDE
     Indication: Hypotension
     Dosage: TIME INTERVAL: 0.33333333 DAYS: WITH MEALS
     Route: 048
     Dates: start: 20190430
  20. ALBUMIN HUMAN [Concomitant]
     Active Substance: ALBUMIN HUMAN
     Indication: Blood volume expansion
     Dosage: 5 % INFUSION 25 G 500 ML
     Route: 042
     Dates: start: 20190430
  21. ALBUMIN HUMAN [Concomitant]
     Active Substance: ALBUMIN HUMAN
     Indication: Blood volume expansion
     Dosage: 25 % INFUSION 25 G 100 ML, Q8H
     Route: 042
     Dates: start: 20190501
  22. ULTRAM [Concomitant]
     Active Substance: TRAMADOL HYDROCHLORIDE
     Indication: Product used for unknown indication
     Route: 048
     Dates: start: 20190430
  23. HUMALOG [Concomitant]
     Active Substance: INSULIN LISPRO
     Indication: Product used for unknown indication
     Dosage: 1-6 UNITS PRN
     Route: 058
  24. SODIUM BICARBONATE [Concomitant]
     Active Substance: SODIUM BICARBONATE
     Indication: Product used for unknown indication
     Dosage: WITH MEALS
     Route: 048

REACTIONS (3)
  - Pancreatic carcinoma [Fatal]
  - Hepatic cancer metastatic [Not Recovered/Not Resolved]
  - Acute kidney injury [Unknown]

NARRATIVE: CASE EVENT DATE: 20190101
